FAERS Safety Report 13533365 (Version 1)
Quarter: 2017Q2

REPORT INFORMATION
  Report Type: Spontaneous
  Country: US (occurrence: US)
  Receive Date: 20170510
  Receipt Date: 20170510
  Transmission Date: 20170830
  Serious: No
  Sender: FDA-Public Use
  Company Number: US-TARO-2016TAR00721

PATIENT
  Age: 48 Year
  Sex: Female

DRUGS (2)
  1. CARBAMAZEPINE EXTENDED RELEASE TABLETS USP 200MG [Suspect]
     Active Substance: CARBAMAZEPINE
     Dosage: 2 TABLETS, 1X/DAY
     Route: 048
     Dates: start: 201606
  2. CARBAMAZEPINE EXTENDED RELEASE TABLETS USP 200MG [Suspect]
     Active Substance: CARBAMAZEPINE
     Dosage: 1 TABLETS, 1X/DAY
     Route: 048
     Dates: start: 201606

REACTIONS (2)
  - Medication residue present [Not Recovered/Not Resolved]
  - Underdose [Not Recovered/Not Resolved]

NARRATIVE: CASE EVENT DATE: 2016
